FAERS Safety Report 15036886 (Version 1)
Quarter: 2018Q2

REPORT INFORMATION
  Report Type: Spontaneous
  Country: US (occurrence: US)
  Receive Date: 20180530
  Receipt Date: 20180530
  Transmission Date: 20180711
  Serious: No
  Sender: FDA-Public Use
  Company Number: None

PATIENT
  Age: 75 Year
  Sex: Female
  Weight: 81.65 kg

DRUGS (5)
  1. NAPROSYN [Concomitant]
     Active Substance: NAPROXEN
  2. LOW DOSE ASPRIN [Concomitant]
     Active Substance: ASPIRIN
  3. BASAGLAR [Suspect]
     Active Substance: INSULIN GLARGINE
     Indication: DIABETES MELLITUS
     Dosage: ?          QUANTITY:20 MG MILLIGRAM(S);?
     Dates: start: 201801, end: 20180410
  4. INSULIN [Concomitant]
     Active Substance: INSULIN NOS
  5. VITAMIN D3 [Concomitant]
     Active Substance: CHOLECALCIFEROL

REACTIONS (5)
  - Muscular weakness [None]
  - Tremor [None]
  - Oedema peripheral [None]
  - Glycosylated haemoglobin increased [None]
  - Dyspnoea [None]

NARRATIVE: CASE EVENT DATE: 20180410
